FAERS Safety Report 11071620 (Version 1)
Quarter: 2015Q2

REPORT INFORMATION
  Report Type: Spontaneous
  Country: US (occurrence: None)
  Receive Date: 20150427
  Receipt Date: 20150427
  Transmission Date: 20150821
  Serious: Yes (Hospitalization)
  Sender: FDA-Public Use
  Company Number: None

PATIENT
  Age: 65 Year
  Sex: Female
  Weight: 82.7 kg

DRUGS (3)
  1. ZOLOFT [Concomitant]
     Active Substance: SERTRALINE HYDROCHLORIDE
  2. CISPLATIN. [Suspect]
     Active Substance: CISPLATIN
     Dates: end: 20150319
  3. VITAMIN D [Concomitant]
     Active Substance: CHOLECALCIFEROL

REACTIONS (9)
  - Flank pain [None]
  - Dysuria [None]
  - Pyrexia [None]
  - Nausea [None]
  - Nephrolithiasis [None]
  - Urinary tract obstruction [None]
  - Hydronephrosis [None]
  - Vomiting [None]
  - Urinary tract infection [None]

NARRATIVE: CASE EVENT DATE: 20150415
